FAERS Safety Report 24045347 (Version 1)
Quarter: 2024Q3

REPORT INFORMATION
  Report Type: Spontaneous
  Country: IN (occurrence: IN)
  Receive Date: 20240703
  Receipt Date: 20240703
  Transmission Date: 20241016
  Serious: Yes (Other)
  Sender: MYLAN
  Company Number: IN-MYLANLABS-2024M1061494

PATIENT
  Age: 28 Year
  Sex: Female

DRUGS (3)
  1. TACROLIMUS [Suspect]
     Active Substance: TACROLIMUS
     Indication: Immunosuppressant drug therapy
     Dosage: UNK
     Route: 065
  2. MYCOPHENOLATE MOFETIL [Suspect]
     Active Substance: MYCOPHENOLATE MOFETIL
     Indication: Immunosuppressant drug therapy
     Dosage: UNK
     Route: 065
  3. PREDNISOLONE [Suspect]
     Active Substance: PREDNISOLONE
     Indication: Immunosuppressant drug therapy
     Dosage: UNK
     Route: 065

REACTIONS (13)
  - Toxicity to various agents [Recovering/Resolving]
  - Transplant failure [Recovering/Resolving]
  - Renal cortical necrosis [Recovering/Resolving]
  - Delayed graft function [Recovering/Resolving]
  - Renal tubular injury [Recovering/Resolving]
  - Renal artery thrombosis [Recovering/Resolving]
  - Renal artery occlusion [Recovering/Resolving]
  - Graft complication [Recovering/Resolving]
  - Azotaemia [Recovering/Resolving]
  - Hyponatraemia [Recovering/Resolving]
  - Emphysematous pyelonephritis [Recovering/Resolving]
  - Sepsis [Recovering/Resolving]
  - Drug ineffective [Unknown]
